FAERS Safety Report 6724805-7 (Version None)
Quarter: 2010Q2

REPORT INFORMATION
  Report Type: 
  Country: None (occurrence: None)
  Receive Date: 20100513
  Receipt Date: 20100513
  Transmission Date: 20101027
  Serious: Yes (Hospitalization, Other)
  Sender: FDA-Public Use
  Company Number: None

PATIENT
  Age: 35 Year
  Sex: Female
  Weight: 58.9676 kg

DRUGS (2)
  1. PAXIL [Suspect]
     Indication: BIPOLAR DISORDER
     Dosage: 40 MG. DAILY PO
     Route: 048
     Dates: start: 20090601, end: 20100401
  2. PAXIL [Suspect]
     Indication: BIPOLAR DISORDER
     Dosage: 40 MG. DAILY PO
     Route: 048
     Dates: start: 20100402, end: 20100407

REACTIONS (10)
  - CONDITION AGGRAVATED [None]
  - DEPRESSION [None]
  - FEELING COLD [None]
  - HOT FLUSH [None]
  - OBSESSIVE THOUGHTS [None]
  - OBSESSIVE-COMPULSIVE DISORDER [None]
  - PANIC ATTACK [None]
  - SEXUAL DYSFUNCTION [None]
  - SEXUAL INHIBITION [None]
  - SLEEP TERROR [None]
